FAERS Safety Report 4288488-0 (Version None)
Quarter: 2004Q1

REPORT INFORMATION
  Report Type: 
  Country: None (occurrence: None)
  Receive Date: 20040205
  Receipt Date: 20040202
  Transmission Date: 20041129
  Serious: No
  Sender: FDA-Public Use
  Company Number: 2004UW01717

PATIENT
  Age: 53 Year
  Sex: Male

DRUGS (4)
  1. IRESSA [Suspect]
     Indication: LUNG NEOPLASM MALIGNANT
     Dosage: 250 MG PO
     Route: 048
  2. PRAVACHOL [Concomitant]
  3. COZAAR [Concomitant]
  4. COMPAZINE [Concomitant]

REACTIONS (1)
  - ENCEPHALOPATHY [None]
